FAERS Safety Report 9233539 (Version 2)
Quarter: 2013Q2

REPORT INFORMATION
  Report Type: Spontaneous
  Country: US (occurrence: US)
  Receive Date: 20130416
  Receipt Date: 20130628
  Transmission Date: 20140414
  Serious: Yes (Hospitalization, Other)
  Sender: FDA-Public Use
  Company Number: US-BRISTOL-MYERS SQUIBB COMPANY-18761494

PATIENT
  Age: 60 Year
  Sex: Male

DRUGS (1)
  1. YERVOY [Suspect]
     Dosage: TOTAL 3 DOSES?LAST DOSE WAS ON 29MAR2013

REACTIONS (2)
  - Cellulitis [Recovered/Resolved]
  - Oedema peripheral [Recovered/Resolved]
